FAERS Safety Report 18866982 (Version 2)
Quarter: 2024Q1

REPORT INFORMATION
  Report Type: Spontaneous
  Country: FR (occurrence: FR)
  Receive Date: 20210208
  Receipt Date: 20240326
  Transmission Date: 20240410
  Serious: Yes (Life-Threatening, Other)
  Sender: FDA-Public Use
  Company Number: FR-CELLTRION INC.-2021FR001175

PATIENT

DRUGS (8)
  1. TRUXIMA [Suspect]
     Active Substance: RITUXIMAB-ABBS
     Indication: B-cell lymphoma
     Dosage: 750 MG, QD
     Route: 042
     Dates: start: 20200730, end: 20200730
  2. CARBOPLATIN [Suspect]
     Active Substance: CARBOPLATIN
     Indication: B-cell lymphoma
     Dosage: 560 MG, QD
     Route: 042
     Dates: start: 20200730, end: 20200730
  3. CYTARABINE [Suspect]
     Active Substance: CYTARABINE
     Indication: B-cell lymphoma
     Dosage: 8000 MG, QD
     Route: 042
     Dates: start: 20200731, end: 20200731
  4. POLARAMINE [Concomitant]
     Active Substance: DEXCHLORPHENIRAMINE MALEATE
  5. ONDANSETRON [Concomitant]
     Active Substance: ONDANSETRON
  6. EMEND [Concomitant]
     Active Substance: APREPITANT
  7. PERFALGAN [Concomitant]
     Active Substance: ACETAMINOPHEN
  8. DEXAMETHASONE ACETATE [Concomitant]
     Active Substance: DEXAMETHASONE ACETATE

REACTIONS (2)
  - Shock [Recovered/Resolved]
  - Underdose [Unknown]

NARRATIVE: CASE EVENT DATE: 20200801
